FAERS Safety Report 7995967-9 (Version None)
Quarter: 2011Q4

REPORT INFORMATION
  Report Type: 
  Country: None (occurrence: None)
  Receive Date: 20111220
  Receipt Date: 20111213
  Transmission Date: 20120403
  Serious: Yes (Other)
  Sender: FDA-Public Use
  Company Number: CA-PFIZER INC-2011304271

PATIENT
  Age: 69 Year
  Sex: Female
  Weight: 103 kg

DRUGS (10)
  1. REMERON [Concomitant]
     Dosage: 15 MG AT BEDTIME
  2. PREVACID [Concomitant]
     Dosage: 30 MG, 1X/DAY IN AM
  3. ACETAMINOPHEN [Concomitant]
     Dosage: 650 MG, 4X/DAY
     Route: 048
  4. CORTATE [Concomitant]
     Indication: ERYTHEMA
     Dosage: AS NEEDED
     Route: 061
  5. CELEBREX [Suspect]
     Dosage: 200 MG, 1X/DAY
     Route: 048
     Dates: start: 20101130, end: 20101215
  6. SEROQUEL [Concomitant]
     Dosage: 25 MG AT BEDTIME
  7. CELEBREX [Suspect]
     Indication: OSTEOARTHRITIS
     Dosage: 100 MG, 1X/DAY
     Route: 048
     Dates: start: 20080601, end: 20101129
  8. TENORMIN [Concomitant]
     Dosage: 100 MG, 1X/DAY IN AM
  9. LACRI-LUBE [Concomitant]
     Dosage: IN BOTH EYES AT BEDTIME
     Route: 061
  10. MIRALAX [Concomitant]
     Dosage: 7.5 G, 1X/DAY

REACTIONS (1)
  - PEMPHIGOID [None]
